FAERS Safety Report 5759152-3 (Version None)
Quarter: 2008Q2

REPORT INFORMATION
  Report Type: 
  Country: None (occurrence: None)
  Receive Date: 20080604
  Receipt Date: 20080124
  Transmission Date: 20081010
  Serious: Yes (Hospitalization, Other)
  Sender: FDA-Public Use
  Company Number: US-BOEHRINGER INGELHEIM GMBH, GERMANY-2007-BP-12166BP

PATIENT
  Sex: Male
  Weight: 100 kg

DRUGS (30)
  1. MIRAPEX [Suspect]
     Indication: PARKINSON'S DISEASE
     Route: 048
     Dates: start: 19980209, end: 20050701
  2. AMANTADINE HCL [Concomitant]
     Indication: PARKINSON'S DISEASE
  3. PRAVASTATIN [Concomitant]
     Indication: BLOOD CHOLESTEROL
  4. CARBIDOPA [Concomitant]
     Indication: PARKINSON'S DISEASE
  5. IBUROFEN [Concomitant]
     Indication: ARTHRITIS
  6. METFORMIN HCL [Concomitant]
     Indication: DIABETES MELLITUS
  7. GLIPIZIDE [Concomitant]
     Indication: DIABETES MELLITUS
  8. INDERAL [Concomitant]
     Indication: HYPERTENSION
  9. REQUIP [Concomitant]
     Indication: RESTLESS LEGS SYNDROME
  10. XANAX [Concomitant]
     Indication: FEELING OF RELAXATION
  11. COMTAN [Concomitant]
     Indication: PARKINSON'S DISEASE
  12. ELDEPRYL [Concomitant]
  13. ARTANE [Concomitant]
  14. PRINIVIL [Concomitant]
  15. ATENOLOL [Concomitant]
  16. VIAGRA [Concomitant]
  17. ZOLOFT [Concomitant]
  18. WELLBUTRIN [Concomitant]
  19. VOLTAREN [Concomitant]
  20. AMBIEN [Concomitant]
  21. PAXIL [Concomitant]
  22. CLONAZEPAM [Concomitant]
  23. REMERON [Concomitant]
  24. ZITHROMAX [Concomitant]
  25. DEPAKOTE [Concomitant]
  26. COLACE [Concomitant]
  27. ATIVAN [Concomitant]
  28. TYLENOL [Concomitant]
  29. INSULIN [Concomitant]
  30. VISTARIL [Concomitant]

REACTIONS (9)
  - DEPRESSION [None]
  - EMOTIONAL DISTRESS [None]
  - HYPERPHAGIA [None]
  - INJURY [None]
  - OBSESSIVE-COMPULSIVE DISORDER [None]
  - PATHOLOGICAL GAMBLING [None]
  - SUICIDAL IDEATION [None]
  - SUICIDE ATTEMPT [None]
  - WEIGHT INCREASED [None]
